FAERS Safety Report 12167258 (Version 7)
Quarter: 2016Q4

REPORT INFORMATION
  Report Type: Spontaneous
  Country: US (occurrence: US)
  Receive Date: 20160310
  Receipt Date: 20161219
  Transmission Date: 20170207
  Serious: Yes (Other)
  Sender: FDA-Public Use
  Company Number: PHEH2016US005622

PATIENT
  Sex: Female

DRUGS (3)
  1. ZOFRAN [Suspect]
     Active Substance: ONDANSETRON HYDROCHLORIDE
     Indication: VOMITING IN PREGNANCY
     Dosage: PRN (AS NEEDED)
     Route: 048
  2. ONDANSETRON TEVA//ONDANSETRON HYDROCHLORIDE [Suspect]
     Active Substance: ONDANSETRON HYDROCHLORIDE
     Indication: VOMITING IN PREGNANCY
     Dosage: 4 MG, QID
     Route: 065
     Dates: start: 20130816, end: 20130821
  3. ONDANSETRON DR REDDY [Suspect]
     Active Substance: ONDANSETRON
     Indication: VOMITING IN PREGNANCY
     Dosage: 4 MG, QID
     Route: 065
     Dates: start: 20130919, end: 20130926

REACTIONS (7)
  - Anxiety [Unknown]
  - Normal newborn [Unknown]
  - Emotional distress [Unknown]
  - Pain [Unknown]
  - Product use issue [Unknown]
  - Injury [Unknown]
  - Maternal exposure during pregnancy [Unknown]
